FAERS Safety Report 9104641 (Version 4)
Quarter: 2013Q4

REPORT INFORMATION
  Report Type: Report from Study
  Country: JP (occurrence: JP)
  Receive Date: 20130220
  Receipt Date: 20131003
  Transmission Date: 20140711
  Serious: Yes (Hospitalization)
  Sender: FDA-Public Use
  Company Number: JP-JNJFOC-20130210397

PATIENT
  Age: 59 Year
  Sex: Female
  Weight: 54 kg

DRUGS (15)
  1. SIMPONI [Suspect]
     Indication: RHEUMATOID ARTHRITIS
     Route: 058
     Dates: start: 20121019
  2. SIMPONI [Suspect]
     Indication: RHEUMATOID ARTHRITIS
     Route: 058
     Dates: start: 20120921
  3. SIMPONI [Suspect]
     Indication: RHEUMATOID ARTHRITIS
     Route: 058
     Dates: start: 20120824
  4. SIMPONI [Suspect]
     Indication: RHEUMATOID ARTHRITIS
     Route: 058
     Dates: start: 20120727
  5. SIMPONI [Suspect]
     Indication: RHEUMATOID ARTHRITIS
     Route: 058
     Dates: start: 20121116
  6. METHOTREXATE [Suspect]
     Indication: RHEUMATOID ARTHRITIS
     Dates: end: 20120622
  7. METHOTREXATE [Suspect]
     Indication: RHEUMATOID ARTHRITIS
     Dates: start: 20120623
  8. PREDNISOLONE [Concomitant]
     Indication: RHEUMATOID ARTHRITIS
     Route: 048
  9. MUCOSTA [Concomitant]
     Indication: PROPHYLAXIS
  10. ROCALTROL [Concomitant]
     Indication: PROPHYLAXIS
  11. TAKEPRON [Concomitant]
     Indication: PROPHYLAXIS
  12. LIVALO [Concomitant]
     Indication: HYPERCHOLESTEROLAEMIA
     Route: 048
  13. FOLIAMIN [Concomitant]
     Indication: PROPHYLAXIS
  14. PHENOBAL [Concomitant]
     Indication: INFECTION
  15. SEFIROM [Concomitant]
     Indication: INFECTION
     Route: 042

REACTIONS (4)
  - Epilepsy [Recovered/Resolved]
  - Upper respiratory tract infection [Recovered/Resolved]
  - Bronchitis [Recovered/Resolved]
  - Liver disorder [Recovered/Resolved]
